FAERS Safety Report 23296639 (Version 1)
Quarter: 2023Q4

REPORT INFORMATION
  Report Type: Spontaneous
  Country: CN (occurrence: CN)
  Receive Date: 20231214
  Receipt Date: 20231214
  Transmission Date: 20240110
  Serious: Yes (Other)
  Sender: FDA-Public Use
  Company Number: CN-PFIZER INC-PV202300199898

PATIENT
  Age: 42 Year
  Sex: Male
  Weight: 50.7 kg

DRUGS (4)
  1. TYGACIL [Suspect]
     Active Substance: TIGECYCLINE
     Indication: Chloroma
     Dosage: 50 MG, 2X/DAY (Q12H)
     Route: 041
     Dates: start: 20231125, end: 20231203
  2. TYGACIL [Suspect]
     Active Substance: TIGECYCLINE
     Indication: Agranulocytosis
  3. TYGACIL [Suspect]
     Active Substance: TIGECYCLINE
     Indication: Infection
  4. SODIUM CHLORIDE [Concomitant]
     Active Substance: SODIUM CHLORIDE
     Indication: Vehicle solution use
     Dosage: 100 ML, 2X/DAY
     Route: 041
     Dates: start: 20231125, end: 20231125

REACTIONS (2)
  - Haemorrhage [Recovering/Resolving]
  - Coagulation time prolonged [Recovering/Resolving]

NARRATIVE: CASE EVENT DATE: 20231203
